FAERS Safety Report 4747717-7 (Version None)
Quarter: 2005Q3

REPORT INFORMATION
  Report Type: 
  Country: None (occurrence: None)
  Receive Date: 20050816
  Receipt Date: 20050804
  Transmission Date: 20060218
  Serious: Yes (Other)
  Sender: FDA-Public Use
  Company Number: 430021N05FRA

PATIENT
  Age: 42 Year
  Sex: Female

DRUGS (1)
  1. NOVANTRONE [Suspect]
     Indication: MULTIPLE SCLEROSIS
     Dosage: INTRAVENOUS (NO OTHERWISE ESPECIFIED)
     Route: 042

REACTIONS (3)
  - CYANOSIS [None]
  - NAIL DISCOLOURATION [None]
  - PERICARDITIS [None]
